FAERS Safety Report 7266344-3 (Version None)
Quarter: 2011Q1

REPORT INFORMATION
  Report Type: 
  Country: None (occurrence: None)
  Receive Date: 20110131
  Receipt Date: 20101217
  Transmission Date: 20110831
  Serious: Yes (Other)
  Sender: FDA-Public Use
  Company Number: US-BAXTER-2010BH000147

PATIENT
  Age: 48 Year
  Sex: Male
  Weight: 117 kg

DRUGS (37)
  1. HEPARIN SODIUM INJECTION [Suspect]
     Route: 042
     Dates: start: 20100311, end: 20100311
  2. MORPHINE [Concomitant]
     Indication: PRODUCT USED FOR UNKNOWN INDICATION
     Route: 065
  3. CHLORHEXIDINE GLUCONATE [Concomitant]
     Indication: PRODUCT USED FOR UNKNOWN INDICATION
     Route: 065
  4. PERCOCET [Concomitant]
     Indication: PRODUCT USED FOR UNKNOWN INDICATION
     Route: 065
  5. TORADOL [Concomitant]
     Indication: PRODUCT USED FOR UNKNOWN INDICATION
     Route: 065
  6. HEPARIN SODIUM INJECTION [Suspect]
     Indication: MYECTOMY
     Route: 042
     Dates: start: 20080103, end: 20080103
  7. HEPARIN SODIUM INJECTION [Suspect]
     Route: 065
     Dates: start: 20080103, end: 20080103
  8. HEPARIN SODIUM INJECTION [Suspect]
     Route: 042
     Dates: start: 20100311, end: 20100311
  9. LOVENOX [Concomitant]
     Indication: PRODUCT USED FOR UNKNOWN INDICATION
     Route: 065
  10. PANTOPRAZOLE [Concomitant]
     Indication: PRODUCT USED FOR UNKNOWN INDICATION
     Route: 065
  11. HEPARIN SODIUM INJECTION [Suspect]
     Route: 042
     Dates: start: 20100311, end: 20100311
  12. HEPARIN SODIUM INJECTION [Suspect]
     Route: 042
     Dates: start: 20100311, end: 20100311
  13. WARFARIN SODIUM [Concomitant]
     Indication: PRODUCT USED FOR UNKNOWN INDICATION
     Route: 065
  14. HEPARIN SODIUM INJECTION [Suspect]
     Route: 065
     Dates: start: 20080103, end: 20080103
  15. HEPARIN SODIUM INJECTION [Suspect]
     Route: 042
     Dates: start: 20100311, end: 20100311
  16. HEPARIN SODIUM INJECTION [Suspect]
     Route: 042
     Dates: start: 20100311, end: 20100311
  17. HEPARIN SODIUM INJECTION [Suspect]
     Route: 042
     Dates: start: 20100311, end: 20100311
  18. LEVOTHYROXINE SODIUM [Concomitant]
     Indication: PRODUCT USED FOR UNKNOWN INDICATION
     Route: 065
  19. ALBUMIN (HUMAN) [Concomitant]
     Indication: PRODUCT USED FOR UNKNOWN INDICATION
     Route: 042
  20. HEPARIN SODIUM INJECTION [Suspect]
     Route: 042
     Dates: start: 20100311, end: 20100311
  21. SUCRALFATE [Concomitant]
     Indication: PRODUCT USED FOR UNKNOWN INDICATION
     Route: 065
  22. ACETAMINOPHEN [Concomitant]
     Indication: PRODUCT USED FOR UNKNOWN INDICATION
     Route: 065
  23. METOCLOPRAMIDE [Concomitant]
     Indication: PRODUCT USED FOR UNKNOWN INDICATION
     Route: 065
  24. HEPARIN SODIUM INJECTION [Suspect]
     Indication: COX-MAZE PROCEDURE
     Route: 042
     Dates: start: 20080103, end: 20080103
  25. HEPARIN SODIUM INJECTION [Suspect]
     Route: 042
     Dates: start: 20100311, end: 20100311
  26. HEPARIN SODIUM INJECTION [Suspect]
     Route: 042
     Dates: start: 20100311, end: 20100311
  27. HEPARIN SODIUM 5,000 UNITS IN DEXTROSE 5% [Suspect]
     Indication: CARDIAC ELECTROPHYSIOLOGIC STUDY
     Route: 042
     Dates: start: 20100311, end: 20100311
  28. METOPROLOL TARTRATE [Concomitant]
     Indication: PRODUCT USED FOR UNKNOWN INDICATION
     Route: 065
  29. DEMEROL [Concomitant]
     Indication: PRODUCT USED FOR UNKNOWN INDICATION
     Route: 065
  30. HEPARIN SODIUM INJECTION [Suspect]
     Indication: MITRAL VALVE REPAIR
     Route: 042
     Dates: start: 20080103, end: 20080103
  31. HEPARIN SODIUM INJECTION [Suspect]
     Route: 065
     Dates: start: 20080103, end: 20080103
  32. HEPARIN SODIUM INJECTION [Suspect]
     Route: 042
     Dates: start: 20100311, end: 20100311
  33. CEFAZOLIN [Concomitant]
     Indication: PRODUCT USED FOR UNKNOWN INDICATION
     Route: 065
  34. DOCUSATE SODIUM [Concomitant]
     Indication: PRODUCT USED FOR UNKNOWN INDICATION
     Route: 065
  35. HEPARIN SODIUM INJECTION [Suspect]
     Route: 042
     Dates: start: 20100311, end: 20100311
  36. ACETYLSALICYLIC ACID SRT [Concomitant]
     Indication: PRODUCT USED FOR UNKNOWN INDICATION
     Route: 065
  37. OXYCODONE HCL [Concomitant]
     Indication: PRODUCT USED FOR UNKNOWN INDICATION
     Route: 048

REACTIONS (25)
  - DYSPNOEA [None]
  - LEUKOCYTOSIS [None]
  - BLOOD CULTURE POSITIVE [None]
  - DIZZINESS [None]
  - HEPATIC FUNCTION ABNORMAL [None]
  - ATELECTASIS [None]
  - ANAEMIA [None]
  - CHILLS [None]
  - MYALGIA [None]
  - FLUID OVERLOAD [None]
  - RENAL FAILURE ACUTE [None]
  - PARAESTHESIA [None]
  - NAUSEA [None]
  - PRESYNCOPE [None]
  - THROMBOCYTOPENIA [None]
  - HYPOTENSION [None]
  - HYPOVOLAEMIA [None]
  - CHEST PAIN [None]
  - TROPONIN INCREASED [None]
  - FATIGUE [None]
  - WHEEZING [None]
  - OEDEMA [None]
  - PYREXIA [None]
  - ASTHENIA [None]
  - CONSTIPATION [None]
